FAERS Safety Report 23062734 (Version 2)
Quarter: 2023Q4

REPORT INFORMATION
  Report Type: 
  Country: US (occurrence: US)
  Receive Date: 20231013
  Receipt Date: 20231025
  Transmission Date: 20240110
  Serious: No
  Sender: FDA-Public Use
  Company Number: US-PHARMING-PHAUS2023000644

PATIENT

DRUGS (1)
  1. LENIOLISIB [Suspect]
     Active Substance: LENIOLISIB
     Indication: Activated PI3 kinase delta syndrome
     Dosage: 70 MILLIGRAM, BID
     Route: 048
     Dates: start: 2018, end: 2020

REACTIONS (5)
  - Weight increased [Unknown]
  - Abdominal distension [Unknown]
  - Alopecia [Unknown]
  - Gastrooesophageal reflux disease [Unknown]
  - Product dose omission issue [Unknown]
